FAERS Safety Report 18087833 (Version 1)
Quarter: 2020Q3

REPORT INFORMATION
  Report Type: Spontaneous
  Country: US (occurrence: US)
  Receive Date: 20200729
  Receipt Date: 20200729
  Transmission Date: 20201103
  Serious: Yes (Other)
  Sender: FDA-Public Use
  Company Number: US-MACLEODS PHARMACEUTICALS US LTD-MAC2020027426

PATIENT

DRUGS (7)
  1. RITONAVIR. [Suspect]
     Active Substance: RITONAVIR
     Dosage: 500 MILLIGRAM, BID
     Route: 048
  2. RITONAVIR. [Suspect]
     Active Substance: RITONAVIR
     Indication: PLASMA CELL MYELOMA
     Dosage: 300 MILLIGRAM, BID
     Route: 048
  3. METFORMIN [Suspect]
     Active Substance: METFORMIN HYDROCHLORIDE
     Dosage: 1000 MILLIGRAM, BID
     Route: 048
  4. METFORMIN [Suspect]
     Active Substance: METFORMIN HYDROCHLORIDE
     Indication: PLASMA CELL MYELOMA
     Dosage: 500 MILLIGRAM, BID
     Route: 048
  5. RITONAVIR. [Suspect]
     Active Substance: RITONAVIR
     Dosage: 400 MILLIGRAM, BID
     Route: 048
  6. RITONAVIR. [Suspect]
     Active Substance: RITONAVIR
     Dosage: 600 MILLIGRAM, BID
     Route: 048
  7. RITONAVIR. [Suspect]
     Active Substance: RITONAVIR
     Dosage: 800 MILLIGRAM, BID
     Route: 048

REACTIONS (5)
  - Lactic acidosis [Unknown]
  - Hyponatraemia [Unknown]
  - Plasma cell myeloma [Unknown]
  - Acute kidney injury [Unknown]
  - Hypomagnesaemia [Unknown]
